FAERS Safety Report 6087403-7 (Version None)
Quarter: 2009Q1

REPORT INFORMATION
  Report Type: 
  Country: None (occurrence: None)
  Receive Date: 20090219
  Receipt Date: 20090205
  Transmission Date: 20090719
  Serious: Yes (Other)
  Sender: FDA-Public Use
  Company Number: 231358K09USA

PATIENT
  Age: 42 Year
  Sex: Female

DRUGS (4)
  1. REBIF [Suspect]
     Indication: MULTIPLE SCLEROSIS
     Dosage: 44 MCG, 3 IN 1 WEEKS, SUBCUTANEOUS
     Route: 058
     Dates: start: 20040804
  2. BACLOFEN [Concomitant]
  3. GABAPENTIN [Concomitant]
  4. HYDROCODONE (HYDROCODONE) [Concomitant]

REACTIONS (3)
  - MOBILITY DECREASED [None]
  - NEUROPATHY PERIPHERAL [None]
  - POOR PERIPHERAL CIRCULATION [None]
